FAERS Safety Report 10556156 (Version 1)
Quarter: 2014Q4

REPORT INFORMATION
  Report Type: Spontaneous
  Country: US (occurrence: US)
  Receive Date: 20141031
  Receipt Date: 20141031
  Transmission Date: 20150529
  Serious: Yes (Hospitalization)
  Sender: FDA-Public Use
  Company Number: US-AMGEN-USASP2014083059

PATIENT
  Age: 43 Year
  Sex: Female

DRUGS (2)
  1. HUMIRA [Suspect]
     Active Substance: ADALIMUMAB
     Indication: PRODUCT USED FOR UNKNOWN INDICATION
     Dosage: UNK
     Route: 065
  2. ENBREL [Suspect]
     Active Substance: ETANERCEPT
     Indication: RHEUMATOID ARTHRITIS
     Dosage: 50 MG, QWK
     Route: 065
     Dates: end: 201408

REACTIONS (9)
  - Pain in extremity [Recovered/Resolved]
  - Weight increased [Not Recovered/Not Resolved]
  - Arthralgia [Recovered/Resolved]
  - Neck pain [Recovered/Resolved]
  - Joint crepitation [Recovered/Resolved]
  - Cerebrovascular accident [Not Recovered/Not Resolved]
  - Pain [Not Recovered/Not Resolved]
  - Hand deformity [Not Recovered/Not Resolved]
  - Mobility decreased [Not Recovered/Not Resolved]

NARRATIVE: CASE EVENT DATE: 2011
